FAERS Safety Report 4894469-6 (Version None)
Quarter: 2006Q1

REPORT INFORMATION
  Report Type: 
  Country: None (occurrence: None)
  Receive Date: 20060118
  Receipt Date: 20060103
  Transmission Date: 20060701
  Serious: Yes (Other)
  Sender: FDA-Public Use
  Company Number: 0003071347-2006-1

PATIENT
  Sex: Female

DRUGS (3)
  1. CANCELLOUS BONE CHIPS AI:  BONE TISSUE HUMAN [Suspect]
     Indication: HIP ARTHROPLASTY
  2. STRUT BONE GRAFT [Suspect]
  3. OPTEFORM - BONE VOID FILLER [Concomitant]

REACTIONS (3)
  - HIV TEST POSITIVE [None]
  - PHARMACEUTICAL PRODUCT COMPLAINT [None]
  - POOR QUALITY DRUG ADMINISTERED [None]
